FAERS Safety Report 8455427-8 (Version None)
Quarter: 2012Q2

REPORT INFORMATION
  Report Type: 
  Country: None (occurrence: None)
  Receive Date: 20120621
  Receipt Date: 20120612
  Transmission Date: 20120825
  Serious: Yes (Other)
  Sender: FDA-Public Use
  Company Number: US-JNJFOC-20120607932

PATIENT

DRUGS (1)
  1. DARUNAVIR HYDRATE [Suspect]
     Indication: HIV INFECTION
     Route: 065

REACTIONS (1)
  - FRACTURE [None]
